FAERS Safety Report 4802787-2 (Version None)
Quarter: 2005Q4

REPORT INFORMATION
  Report Type: 
  Country: None (occurrence: None)
  Receive Date: 20051013
  Receipt Date: 20050930
  Transmission Date: 20060501
  Serious: Yes (Life-Threatening)
  Sender: FDA-Public Use
  Company Number: 2005ADE/CIPRO-005

PATIENT
  Age: 44 Year
  Sex: Female

DRUGS (4)
  1. CIPROFLOXACIN [Suspect]
     Indication: PYELONEPHRITIS
     Dosage: 1000 MG
  2. DIGOXIN [Concomitant]
  3. WARFARIN [Concomitant]
  4. SOTALOL [Concomitant]

REACTIONS (3)
  - LONG QT SYNDROME [None]
  - SYNCOPE [None]
  - TORSADE DE POINTES [None]
